FAERS Safety Report 10069667 (Version 1)
Quarter: 2014Q2

REPORT INFORMATION
  Report Type: Report from Study
  Country: CA (occurrence: CA)
  Receive Date: 20140410
  Receipt Date: 20140410
  Transmission Date: 20141212
  Serious: Yes (Other)
  Sender: FDA-Public Use
  Company Number: CA-BRISTOL-MYERS SQUIBB COMPANY-20591905

PATIENT
  Age: 73 Year
  Sex: Male

DRUGS (12)
  1. ORENCIA [Suspect]
     Indication: RHEUMATOID ARTHRITIS
     Dosage: 1DF: 750UNIT NOS
     Dates: start: 20100924
  2. POTASSIUM [Concomitant]
  3. SULFASALAZINE [Concomitant]
  4. ZOPICLONE [Concomitant]
  5. AMITRIPTYLINE [Concomitant]
  6. OXYCODONE [Concomitant]
  7. RABEPRAZOLE [Concomitant]
  8. PROPRANOLOL [Concomitant]
  9. HYDROCHLOROTHIAZIDE [Concomitant]
  10. VITAMIN D [Concomitant]
  11. ALENDRONATE [Concomitant]
  12. INSULIN [Concomitant]

REACTIONS (2)
  - Nephrolithiasis [Unknown]
  - Dysuria [Unknown]
